FAERS Safety Report 20408847 (Version 2)
Quarter: 2022Q1

REPORT INFORMATION
  Report Type: Spontaneous
  Country: US (occurrence: US)
  Receive Date: 20220201
  Receipt Date: 20220207
  Transmission Date: 20220424
  Serious: Yes (Hospitalization, Other)
  Sender: FDA-Public Use
  Company Number: US-MLMSERVICE-20220117-3320936-1

PATIENT
  Age: 43 Year
  Sex: Female

DRUGS (6)
  1. VORICONAZOLE [Suspect]
     Active Substance: VORICONAZOLE
     Indication: Histoplasmosis
     Dosage: 50 MILLIGRAM, 1 TOTAL (TEST DOSE)
     Route: 048
  2. ITRACONAZOLE [Suspect]
     Active Substance: ITRACONAZOLE
     Indication: Chronic pulmonary histoplasmosis
     Dosage: 200 MILLIGRAM, TWO TIMES A DAY
     Route: 048
  3. ITRACONAZOLE [Suspect]
     Active Substance: ITRACONAZOLE
     Dosage: 200 MILLIGRAM, 3 TIMES A DAY
     Route: 048
  4. TITANIUM DIOXIDE [Suspect]
     Active Substance: TITANIUM DIOXIDE
     Indication: Histoplasmosis
     Dosage: UNK
     Route: 065
  5. HYPROMELLOSES [Suspect]
     Active Substance: HYPROMELLOSES
     Indication: Histoplasmosis
     Dosage: UNK
     Route: 065
  6. STARCH [Suspect]
     Active Substance: STARCH
     Indication: Histoplasmosis
     Dosage: UNK
     Route: 065

REACTIONS (3)
  - Angioedema [Recovered/Resolved]
  - Cross sensitivity reaction [Recovered/Resolved]
  - Urticaria [Recovered/Resolved]
